FAERS Safety Report 8576605-3 (Version None)
Quarter: 2012Q3

REPORT INFORMATION
  Report Type: 
  Country: None (occurrence: None)
  Receive Date: 20120807
  Receipt Date: 20120726
  Transmission Date: 20120928
  Serious: No
  Sender: FDA-Public Use
  Company Number: US-ASTRAZENECA-2012SE53270

PATIENT
  Age: 63 Year
  Sex: Female
  Weight: 102.1 kg

DRUGS (8)
  1. NEXIUM [Suspect]
     Indication: ULCER
     Dosage: TWICE A DAY
     Route: 048
  2. NEXIUM [Suspect]
     Route: 048
     Dates: start: 20010101
  3. SIMVASTATIN [Concomitant]
     Indication: BLOOD CHOLESTEROL INCREASED
  4. VALTREX [Concomitant]
     Indication: HERPES ZOSTER
  5. NEXIUM [Suspect]
     Route: 048
     Dates: start: 20010101
  6. ZOLPIDEM [Concomitant]
     Indication: SLEEP DISORDER
  7. NEXIUM [Suspect]
     Indication: GASTROOESOPHAGEAL REFLUX DISEASE
     Dosage: TWICE A DAY
     Route: 048
  8. AMLODIPINE [Concomitant]
     Indication: HYPERTENSION

REACTIONS (2)
  - OFF LABEL USE [None]
  - BLOOD CHOLESTEROL INCREASED [None]
